FAERS Safety Report 10657786 (Version 2)
Quarter: 2015Q2

REPORT INFORMATION
  Report Type: Spontaneous
  Country: US (occurrence: US)
  Receive Date: 20141217
  Receipt Date: 20150501
  Transmission Date: 20150821
  Serious: Yes (Other)
  Sender: FDA-Public Use
  Company Number: US-BAUSCH-BL-2014-005008

PATIENT
  Age: 34 Year
  Sex: Female

DRUGS (2)
  1. XENAZINE [Suspect]
     Active Substance: TETRABENAZINE
     Dosage: 2 TABLETS IN THE MORNING AND ONE IN UNKNOWN TIME
     Route: 048
     Dates: start: 20150210
  2. XENAZINE [Suspect]
     Active Substance: TETRABENAZINE
     Indication: HUNTINGTON^S DISEASE
     Route: 048
     Dates: start: 20140210

REACTIONS (3)
  - Periorbital haemorrhage [Unknown]
  - Seizure [Unknown]
  - Drooling [Unknown]

NARRATIVE: CASE EVENT DATE: 20140905
